FAERS Safety Report 4979012-5 (Version None)
Quarter: 2006Q2

REPORT INFORMATION
  Report Type: 
  Country: None (occurrence: None)
  Receive Date: 20060419
  Receipt Date: 20060419
  Transmission Date: 20061013
  Serious: Yes (Other)
  Sender: FDA-Public Use
  Company Number: None

PATIENT
  Age: 5 Year
  Sex: Female
  Weight: 16.7831 kg

DRUGS (1)
  1. TAMIFLU [Suspect]
     Indication: INFLUENZA LIKE ILLNESS
     Dosage: 3/4 TEASPOON TWICE DAILY / 5 DAYS PO
     Route: 048
     Dates: start: 20060414, end: 20060415

REACTIONS (8)
  - AMNESIA [None]
  - ANGER [None]
  - BRUXISM [None]
  - CRYING [None]
  - DYSKINESIA [None]
  - MIDDLE INSOMNIA [None]
  - SLEEP TERROR [None]
  - VOMITING [None]
